FAERS Safety Report 24691556 (Version 1)
Quarter: 2024Q4

REPORT INFORMATION
  Report Type: Spontaneous
  Country: CA (occurrence: CA)
  Receive Date: 20241203
  Receipt Date: 20241203
  Transmission Date: 20250115
  Serious: Yes (Other)
  Sender: PFIZER
  Company Number: CA-PFIZER INC-202400063727

PATIENT
  Age: 46 Year
  Sex: Female
  Weight: 70.5 kg

DRUGS (5)
  1. RUXIENCE [Suspect]
     Active Substance: RITUXIMAB-PVVR
     Indication: Multiple sclerosis
     Dosage: 1000 MG, DAY 1 AND DAY 15 THEN SUBSEQUENT TREATMENTS EVERY 24 WEEKS (DAY 1)
     Route: 042
     Dates: start: 20240604
  2. GABAPENTIN [Concomitant]
     Active Substance: GABAPENTIN
     Dosage: UNK
  3. RITALIN [Concomitant]
     Active Substance: METHYLPHENIDATE HYDROCHLORIDE
     Dosage: UNK
  4. RIZATRIPTAN [Concomitant]
     Active Substance: RIZATRIPTAN
     Dosage: UNK
  5. COVID-19 VACCINE [Concomitant]
     Indication: COVID-19 immunisation
     Dosage: DOSE NUMBER UNKNOWN, SINGLE
     Dates: start: 20241025, end: 20241025

REACTIONS (16)
  - Blood pressure increased [Recovered/Resolved]
  - Tachycardia [Recovered/Resolved]
  - Rash erythematous [Recovered/Resolved]
  - Rash macular [Recovered/Resolved]
  - Malaise [Unknown]
  - Migraine [Unknown]
  - Hypoaesthesia [Recovering/Resolving]
  - Anxiety [Recovered/Resolved]
  - Pruritus [Recovered/Resolved]
  - Body temperature increased [Recovered/Resolved]
  - Influenza [Unknown]
  - Nausea [Unknown]
  - Diarrhoea [Unknown]
  - Condition aggravated [Recovering/Resolving]
  - COVID-19 [Recovering/Resolving]
  - Off label use [Unknown]

NARRATIVE: CASE EVENT DATE: 20240101
